FAERS Safety Report 6772580-2 (Version None)
Quarter: 2010Q2

REPORT INFORMATION
  Report Type: 
  Country: None (occurrence: None)
  Receive Date: 20100616
  Receipt Date: 20090505
  Transmission Date: 20101027
  Serious: No
  Sender: FDA-Public Use
  Company Number: US-ASTRAZENECA-2009UW08107

PATIENT
  Age: 2 Year
  Sex: Male
  Weight: 9.2 kg

DRUGS (2)
  1. PULMICORT RESPULES [Suspect]
     Indication: ASTHMA
     Route: 055
     Dates: start: 20081008
  2. ORAPRED ODT [Concomitant]

REACTIONS (2)
  - DECREASED APPETITE [None]
  - WEIGHT GAIN POOR [None]
